FAERS Safety Report 6732453-8 (Version None)
Quarter: 2010Q2

REPORT INFORMATION
  Report Type: 
  Country: None (occurrence: None)
  Receive Date: 20100519
  Receipt Date: 20100506
  Transmission Date: 20101027
  Serious: Yes (Death, Hospitalization)
  Sender: FDA-Public Use
  Company Number: AT-GENZYME-FABR-1001360

PATIENT

DRUGS (2)
  1. FABRAZYME [Suspect]
     Indication: FABRY'S DISEASE
     Dosage: 0.5 MG/KG, ONCE
     Route: 042
     Dates: start: 20100201, end: 20100411
  2. ASPIRIN [Concomitant]
     Indication: DRUG USE FOR UNKNOWN INDICATION
     Dosage: 100 MG, QD

REACTIONS (7)
  - ARTERIAL THROMBOSIS LIMB [None]
  - BRADYCARDIA [None]
  - CARDIAC ARREST [None]
  - CARDIOPULMONARY FAILURE [None]
  - COMPARTMENT SYNDROME [None]
  - VENTRICULAR FIBRILLATION [None]
  - VENTRICULAR TACHYCARDIA [None]
